FAERS Safety Report 6819050-0 (Version None)
Quarter: 2010Q2

REPORT INFORMATION
  Report Type: 
  Country: None (occurrence: None)
  Receive Date: 20100630
  Receipt Date: 20100621
  Transmission Date: 20101027
  Serious: Yes (Other)
  Sender: FDA-Public Use
  Company Number: 2009-GWUS-0719

PATIENT
  Age: 47 Year
  Sex: Female

DRUGS (4)
  1. ALDARA [Suspect]
     Indication: ACTINIC KERATOSIS
     Dosage: 5 PTC;TIW;TOP
     Route: 061
     Dates: start: 20090921, end: 20091012
  2. CYMBALTA [Concomitant]
  3. ESTRADIOL [Concomitant]
  4. SYNTHROID [Concomitant]

REACTIONS (33)
  - AMNESIA [None]
  - ARTHRALGIA [None]
  - ASTHENIA [None]
  - BLOOD PRESSURE INCREASED [None]
  - CHEST DISCOMFORT [None]
  - COMA [None]
  - CONVULSION [None]
  - DEAFNESS UNILATERAL [None]
  - DEPRESSION [None]
  - DIZZINESS [None]
  - DRUG HYPERSENSITIVITY [None]
  - DYSPHONIA [None]
  - DYSPNOEA [None]
  - EAR DISCOMFORT [None]
  - EYE PAIN [None]
  - FALL [None]
  - FATIGUE [None]
  - HEADACHE [None]
  - HYPOAESTHESIA FACIAL [None]
  - HYPOAESTHESIA ORAL [None]
  - IMMUNE SYSTEM DISORDER [None]
  - INFLUENZA LIKE ILLNESS [None]
  - INSOMNIA [None]
  - JOINT SPRAIN [None]
  - MIGRAINE [None]
  - PAIN [None]
  - PHARYNGEAL DISORDER [None]
  - SENSATION OF PRESSURE [None]
  - SHOCK [None]
  - SKELETAL INJURY [None]
  - SWELLING FACE [None]
  - TINNITUS [None]
  - VASCULITIS [None]
